FAERS Safety Report 21869259 (Version 1)
Quarter: 2023Q1

REPORT INFORMATION
  Report Type: Spontaneous
  Country: US (occurrence: US)
  Receive Date: 20230117
  Receipt Date: 20230117
  Transmission Date: 20230418
  Serious: No
  Sender: FDA-Public Use
  Company Number: US-SANOFI-01442536

PATIENT
  Sex: Female

DRUGS (1)
  1. FLOMAX [Suspect]
     Active Substance: TAMSULOSIN HYDROCHLORIDE
     Indication: Urinary retention
     Dosage: UNK

REACTIONS (2)
  - Product use in unapproved indication [Unknown]
  - Exposure during pregnancy [Unknown]
